FAERS Safety Report 6698825-5 (Version None)
Quarter: 2010Q2

REPORT INFORMATION
  Report Type: 
  Country: None (occurrence: None)
  Receive Date: 20100427
  Receipt Date: 20100420
  Transmission Date: 20101027
  Serious: Yes (Other)
  Sender: FDA-Public Use
  Company Number: PHHY2010BR25333

PATIENT
  Sex: Female

DRUGS (5)
  1. PARLODEL [Suspect]
     Dosage: 2.5 MG, EVERY 20 DAYS
     Dates: start: 19890101, end: 19910101
  2. PARLODEL [Suspect]
     Dosage: UNK
     Dates: start: 19920101
  3. PARLODEL [Suspect]
     Dosage: HALF TABLET (2.5MG) EVERY 2 DAYS
  4. PARLODEL [Suspect]
     Dosage: 1/4 TABLET
  5. WARFARIN SODIUM [Concomitant]
     Dosage: UNK

REACTIONS (9)
  - BLOOD PROLACTIN INCREASED [None]
  - CARDIAC DISORDER [None]
  - CEREBROVASCULAR ACCIDENT [None]
  - EXCESSIVE MASTURBATION [None]
  - HEADACHE [None]
  - INCORRECT DOSE ADMINISTERED [None]
  - INFARCTION [None]
  - MENORRHAGIA [None]
  - PHOBIA [None]
